FAERS Safety Report 9522411 (Version 1)
Quarter: 2013Q1

REPORT INFORMATION
  Report Type: Spontaneous
  Country: US (occurrence: None)
  Receive Date: 20130305
  Receipt Date: 20130305
  Transmission Date: 20140127
  Serious: Yes (Hospitalization, Other)
  Sender: FDA-Public Use
  Company Number: 163-21880-12063630

PATIENT
  Age: 60 Year
  Sex: Male

DRUGS (4)
  1. REVLIMID [Suspect]
     Indication: PLASMA CELL MYELOMA
     Dosage: 10 MG, QD X 21 DAYS, PO?
     Route: 048
     Dates: start: 201111
  2. LEVOTHROXINE (LEVOTHYROXINE) (UNKNOWN) [Concomitant]
  3. AVALIDE (KARVEA HCT) (UNKNOWN) [Concomitant]
  4. NEXIUM (ESOMEPRAZOLE) (UNKNOWN) [Concomitant]

REACTIONS (2)
  - Cerebrovascular accident [None]
  - Hemiplegia [None]
